FAERS Safety Report 19543976 (Version 1)
Quarter: 2021Q3

REPORT INFORMATION
  Report Type: Spontaneous
  Country: FR (occurrence: FR)
  Receive Date: 20210713
  Receipt Date: 20210713
  Transmission Date: 20211014
  Serious: Yes (Other)
  Sender: FDA-Public Use
  Company Number: FR-US-PROVELL PHARMACEUTICALS LLC-E2B_90039644

PATIENT
  Age: 59 Year
  Sex: Female
  Weight: 53 kg

DRUGS (3)
  1. LEVOTHYROX 100 [Suspect]
     Active Substance: LEVOTHYROXINE SODIUM
     Route: 048
     Dates: start: 20171207, end: 20180414
  2. LEVOTHYROXINE SODIQUE [Suspect]
     Active Substance: LEVOTHYROXINE SODIUM
     Indication: THYROIDECTOMY
     Route: 048
     Dates: start: 20170415
  3. LEVOTHYROX 100 [Suspect]
     Active Substance: LEVOTHYROXINE SODIUM
     Indication: THYROIDECTOMY
     Route: 048
     Dates: start: 20170330, end: 20171206

REACTIONS (13)
  - Myalgia [Not Recovered/Not Resolved]
  - Sleep disorder [Recovered/Resolved]
  - Nausea [Recovered/Resolved]
  - Fatigue [Not Recovered/Not Resolved]
  - Dry skin [Recovered/Resolved]
  - Memory impairment [Recovered/Resolved]
  - Weight increased [Recovered/Resolved]
  - Vomiting [Recovered/Resolved]
  - Feeling of body temperature change [Recovered/Resolved]
  - Gait disturbance [Not Recovered/Not Resolved]
  - Blood thyroid stimulating hormone normal [Recovered/Resolved]
  - Alopecia [Recovered/Resolved]
  - Arthralgia [Not Recovered/Not Resolved]

NARRATIVE: CASE EVENT DATE: 201705
